FAERS Safety Report 20423387 (Version 1)
Quarter: 2022Q1

REPORT INFORMATION
  Report Type: Report from Study
  Country: US (occurrence: US)
  Receive Date: 20220203
  Receipt Date: 20220203
  Transmission Date: 20220423
  Serious: Yes (Other)
  Sender: FDA-Public Use
  Company Number: US-ALLERGAN-2204149US

PATIENT
  Sex: Female

DRUGS (3)
  1. LINACLOTIDE [Suspect]
     Active Substance: LINACLOTIDE
     Indication: Constipation
     Dosage: UNK
     Dates: start: 20220125
  2. LINACLOTIDE [Suspect]
     Active Substance: LINACLOTIDE
     Dosage: UNK
  3. psych medications [Concomitant]
     Indication: Depression

REACTIONS (7)
  - Endometrial cancer [Recovered/Resolved with Sequelae]
  - Ovarian cancer [Recovered/Resolved with Sequelae]
  - Balance disorder [Not Recovered/Not Resolved]
  - Gait disturbance [Not Recovered/Not Resolved]
  - Fall [Recovered/Resolved]
  - COVID-19 [Unknown]
  - Dizziness [Not Recovered/Not Resolved]

NARRATIVE: CASE EVENT DATE: 20210101
